FAERS Safety Report 13643905 (Version 1)
Quarter: 2017Q2

REPORT INFORMATION
  Report Type: Spontaneous
  Country: US (occurrence: US)
  Receive Date: 20170612
  Receipt Date: 20170612
  Transmission Date: 20170830
  Serious: Yes (Other)
  Sender: FDA-Public Use
  Company Number: US-CELGENEUS-USA-20170600872

PATIENT
  Age: 76 Year

DRUGS (4)
  1. RIGOSERTIB [Suspect]
     Active Substance: RIGOSERTIB
     Dosage: 280 MILLIGRAM
     Route: 048
  2. AZACITIDINE INJECTABLE [Suspect]
     Active Substance: AZACITIDINE
     Indication: MYELODYSPLASTIC SYNDROME
     Dosage: 75 MG/M2 PER DAY
     Route: 041
  3. RIGOSERTIB [Suspect]
     Active Substance: RIGOSERTIB
     Indication: MYELODYSPLASTIC SYNDROME
     Route: 048
  4. RIGOSERTIB [Suspect]
     Active Substance: RIGOSERTIB
     Indication: ACUTE MYELOID LEUKAEMIA
     Dosage: 560 MILLIGRAM
     Route: 048

REACTIONS (1)
  - Toxicity to various agents [Unknown]
